FAERS Safety Report 5531036-5 (Version None)
Quarter: 2007Q4

REPORT INFORMATION
  Report Type: 
  Country: None (occurrence: None)
  Receive Date: 20071130
  Receipt Date: 20071119
  Transmission Date: 20080405
  Serious: Yes (Other)
  Sender: FDA-Public Use
  Company Number: US-PFIZER INC-2007097966

PATIENT
  Sex: Female
  Weight: 97.727 kg

DRUGS (8)
  1. LYRICA [Suspect]
     Indication: HERPES ZOSTER
     Route: 048
  2. ATENOLOL [Concomitant]
  3. GLUCOPHAGE [Concomitant]
  4. ALTACE [Concomitant]
  5. KLONOPIN [Concomitant]
  6. CHOLESTEROL- AND TRIGLYCERIDE REDUCERS [Concomitant]
  7. ANTIHISTAMINES [Concomitant]
  8. ZOLOFT [Concomitant]

REACTIONS (6)
  - CONSTIPATION [None]
  - DRUG INEFFECTIVE [None]
  - PAIN [None]
  - SOMNOLENCE [None]
  - STOMACH DISCOMFORT [None]
  - VISUAL DISTURBANCE [None]
